FAERS Safety Report 24251827 (Version 6)
Quarter: 2024Q3

REPORT INFORMATION
  Report Type: Report from Study
  Country: BR (occurrence: BR)
  Receive Date: 20240827
  Receipt Date: 20240926
  Transmission Date: 20241016
  Serious: Yes (Death, Hospitalization)
  Sender: BIOGEN
  Company Number: BR-BIOGEN-2024BI01279110

PATIENT
  Age: 80 Year
  Sex: Male

DRUGS (1)
  1. TOFERSEN [Suspect]
     Active Substance: TOFERSEN
     Indication: Amyotrophic lateral sclerosis
     Route: 050
     Dates: start: 20230713, end: 20231214

REACTIONS (5)
  - Amyotrophic lateral sclerosis [Fatal]
  - Bacterial infection [Unknown]
  - Blood pressure decreased [Unknown]
  - Faecaluria [Unknown]
  - Inappropriate schedule of product administration [Recovered/Resolved]

NARRATIVE: CASE EVENT DATE: 20230901
